FAERS Safety Report 9191121 (Version 2)
Quarter: 2013Q2

REPORT INFORMATION
  Report Type: Report from Study
  Country: FR (occurrence: FR)
  Receive Date: 20130326
  Receipt Date: 20130508
  Transmission Date: 20140414
  Serious: Yes (Hospitalization)
  Sender: FDA-Public Use
  Company Number: PHHO2013FR004229

PATIENT
  Age: 66 Year
  Sex: Male
  Weight: 85 kg

DRUGS (5)
  1. AFINITOR [Suspect]
     Indication: NEOPLASM
     Dosage: 2.5 MG, QD
     Route: 048
     Dates: start: 20130214, end: 20130320
  2. BEZ235 [Suspect]
     Indication: NEOPLASM
     Dosage: 50 MG, BID
     Route: 048
     Dates: start: 20130214, end: 20130320
  3. LYRICA [Concomitant]
     Indication: HEADACHE
     Dosage: UNK
     Dates: start: 20121109, end: 20130320
  4. FENOFIBRATE [Concomitant]
     Indication: HYPERTRIGLYCERIDAEMIA
     Dosage: 160 MG, UNK
     Route: 065
     Dates: start: 20121220, end: 20130320
  5. DURAGESIC [Concomitant]
     Indication: HEADACHE
     Dosage: 37 MG, UNK
     Route: 065
     Dates: start: 20130304, end: 20130320

REACTIONS (1)
  - Impaired gastric emptying [Unknown]
